FAERS Safety Report 7113451-1 (Version None)
Quarter: 2010Q4

REPORT INFORMATION
  Report Type: 
  Country: None (occurrence: None)
  Receive Date: 20101119
  Receipt Date: 20101109
  Transmission Date: 20110411
  Serious: No
  Sender: FDA-Public Use
  Company Number: US-PFIZER INC-2010148183

PATIENT
  Sex: Female

DRUGS (3)
  1. ADRIAMYCIN PFS [Suspect]
     Indication: BREAST CANCER
     Dosage: EVERY CYCLE
     Route: 042
  2. CYCLOPHOSPHAMIDE [Suspect]
     Indication: BREAST CANCER
     Dosage: EVERY CYCLE
     Route: 042
  3. TAXOTERE [Suspect]
     Indication: BREAST CANCER
     Dosage: EVERY CYCLE
     Route: 041

REACTIONS (1)
  - RASH GENERALISED [None]
